FAERS Safety Report 5841860-7 (Version None)
Quarter: 2008Q3

REPORT INFORMATION
  Report Type: 
  Country: None (occurrence: None)
  Receive Date: 20080811
  Receipt Date: 20080811
  Transmission Date: 20090109
  Serious: No
  Sender: FDA-Public Use
  Company Number: None

PATIENT
  Sex: Female

DRUGS (1)
  1. COPAXONE [Suspect]
     Dosage: COPAXONE 20MG SUB-Q DAILY 20 MG SQ
     Route: 058

REACTIONS (1)
  - HYPOTENSION [None]
